FAERS Safety Report 5934995-1 (Version None)
Quarter: 2008Q4

REPORT INFORMATION
  Report Type: 
  Country: None (occurrence: None)
  Receive Date: 20081029
  Receipt Date: 20081029
  Transmission Date: 20090506
  Serious: No
  Sender: FDA-Public Use
  Company Number: None

PATIENT
  Age: 67 Year
  Sex: Female
  Weight: 58.9676 kg

DRUGS (1)
  1. NITROFURANTOIN [Suspect]
     Indication: URINARY TRACT INFECTION
     Dosage: 2 TWICE DAILY PO
     Route: 048
     Dates: start: 20081025, end: 20081029

REACTIONS (4)
  - CHILLS [None]
  - DIARRHOEA [None]
  - PYREXIA [None]
  - TENDERNESS [None]
